FAERS Safety Report 4943200-4 (Version None)
Quarter: 2006Q1

REPORT INFORMATION
  Report Type: 
  Country: None (occurrence: None)
  Receive Date: 20060314
  Receipt Date: 20050505
  Transmission Date: 20060701
  Serious: Yes (Hospitalization, Disabling)
  Sender: FDA-Public Use
  Company Number: US-MERCK-0505USA00762

PATIENT
  Age: 37 Year
  Sex: Male
  Weight: 105 kg

DRUGS (7)
  1. VIOXX [Suspect]
     Indication: ARTHRITIS
     Route: 048
     Dates: start: 20001214, end: 20010701
  2. TYLENOL (CAPLET) [Concomitant]
     Indication: HEADACHE
     Route: 065
  3. INDOCIN SR [Concomitant]
     Route: 048
  4. SULFASALAZINE [Concomitant]
     Route: 048
  5. GLIPIZIDE [Concomitant]
     Route: 048
  6. RETENSIN [Concomitant]
     Route: 048
  7. PREVACID [Concomitant]
     Route: 065

REACTIONS (3)
  - CORONARY ARTERY DISEASE [None]
  - DEPRESSION [None]
  - MYOCARDIAL INFARCTION [None]
